FAERS Safety Report 20036319 (Version 1)
Quarter: 2021Q4

REPORT INFORMATION
  Report Type: Spontaneous
  Country: ZA (occurrence: ZA)
  Receive Date: 20211105
  Receipt Date: 20211105
  Transmission Date: 20220303
  Serious: Yes (Death, Other)
  Sender: FDA-Public Use
  Company Number: ZA-BoehringerIngelheim-2021-BI-136331

PATIENT
  Sex: Female

DRUGS (2)
  1. PRADAXA [Suspect]
     Active Substance: DABIGATRAN ETEXILATE MESYLATE
     Indication: Product used for unknown indication
     Dosage: PRADAXA 110 MG
  2. AMLOC [RANITIDINE HYDROCHLORIDE] [Concomitant]
     Indication: Product used for unknown indication
     Dosage: AMLOC 5 MG

REACTIONS (1)
  - Death [Fatal]
